FAERS Safety Report 20579294 (Version 1)
Quarter: 2022Q1

REPORT INFORMATION
  Report Type: Spontaneous
  Country: US (occurrence: US)
  Receive Date: 20220310
  Receipt Date: 20220310
  Transmission Date: 20220423
  Serious: Yes (Other)
  Sender: FDA-Public Use
  Company Number: US-DSJP-DSU-2022-108268AA

PATIENT

DRUGS (2)
  1. WELCHOL [Suspect]
     Active Substance: COLESEVELAM HYDROCHLORIDE
     Indication: Blood cholesterol
     Dosage: 3 TABS, AM AND PM
     Route: 048
  2. VICTOZA [Suspect]
     Active Substance: LIRAGLUTIDE
     Indication: Product used for unknown indication
     Dosage: UNK
     Route: 065
     Dates: end: 20210215

REACTIONS (14)
  - Cardiac operation [Unknown]
  - Diabetes mellitus inadequate control [Unknown]
  - Coronary angioplasty [Unknown]
  - Limb discomfort [Not Recovered/Not Resolved]
  - Coronary artery disease [Unknown]
  - Malaise [Unknown]
  - Anxiety [Unknown]
  - Feeling abnormal [Unknown]
  - Pain [Unknown]
  - Blood triglycerides increased [Unknown]
  - Drug ineffective [Unknown]
  - Dysphonia [Not Recovered/Not Resolved]
  - Dysphagia [Not Recovered/Not Resolved]
  - Illness [Not Recovered/Not Resolved]

NARRATIVE: CASE EVENT DATE: 20181220
